FAERS Safety Report 8935744 (Version 1)
Quarter: 2012Q4

REPORT INFORMATION
  Report Type: 
  Country: JP (occurrence: JP)
  Receive Date: 20121130
  Receipt Date: 20121130
  Transmission Date: 20130627
  Serious: Yes (Other)
  Sender: FDA-Public Use
  Company Number: JP-JNJFOC-20121113060

PATIENT
  Age: 63 Year
  Sex: Female

DRUGS (7)
  1. INFLIXIMAB [Suspect]
     Indication: BEHCET^S SYNDROME
     Route: 042
     Dates: start: 200912
  2. INFLIXIMAB [Suspect]
     Indication: BEHCET^S SYNDROME
     Route: 042
     Dates: start: 200906
  3. INFLIXIMAB [Suspect]
     Indication: BEHCET^S SYNDROME
     Route: 042
     Dates: start: 200907
  4. PREDNISOLONE [Suspect]
     Indication: BEHCET^S SYNDROME
     Route: 065
     Dates: start: 200911
  5. PREDNISOLONE [Suspect]
     Indication: BEHCET^S SYNDROME
     Route: 065
     Dates: start: 200906
  6. PREDNISOLONE [Suspect]
     Indication: BEHCET^S SYNDROME
     Route: 065
     Dates: start: 200904
  7. HYDROCORTISONE [Concomitant]
     Indication: PREMEDICATION
     Route: 065

REACTIONS (8)
  - Cytomegalovirus infection [Unknown]
  - Type IV hypersensitivity reaction [Unknown]
  - Infusion related reaction [Unknown]
  - Therapeutic response decreased [Unknown]
  - Gastrointestinal ulcer haemorrhage [Recovering/Resolving]
  - Headache [Unknown]
  - Nausea [Unknown]
  - Dizziness [Unknown]
